FAERS Safety Report 10070357 (Version 1)
Quarter: 2014Q2

REPORT INFORMATION
  Report Type: Spontaneous
  Country: FR (occurrence: FR)
  Receive Date: 20140410
  Receipt Date: 20140410
  Transmission Date: 20141212
  Serious: Yes (Life-Threatening, Hospitalization, Other)
  Sender: FDA-Public Use
  Company Number: FR-PFIZER INC-2014096181

PATIENT
  Age: 54 Year
  Sex: Male

DRUGS (6)
  1. XANAX [Suspect]
     Dosage: 0.5MG 10 BLISTER PACKS
     Route: 048
  2. STILNOX [Suspect]
     Dosage: 3 BLISTERS
     Route: 048
  3. TERCIAN [Suspect]
     Dosage: 1 BOTTLE
     Route: 048
  4. ACUPAN [Suspect]
     Dosage: 5 VIALS
     Route: 048
  5. TOPALGIC [Suspect]
     Dosage: 1 BLISTER PACK
     Route: 048
  6. DAFALGAN CODEINE [Suspect]
     Route: 048

REACTIONS (7)
  - Coma [Recovered/Resolved]
  - Renal failure acute [Recovered/Resolved]
  - Rhabdomyolysis [Recovered/Resolved]
  - Shock [Recovered/Resolved]
  - Miosis [Recovered/Resolved]
  - Toxicity to various agents [Recovered/Resolved]
  - Pneumonia aspiration [Recovered/Resolved]
